FAERS Safety Report 22059152 (Version 1)
Quarter: 2023Q1

REPORT INFORMATION
  Report Type: Report from Study
  Country: DE (occurrence: DE)
  Receive Date: 20230303
  Receipt Date: 20230303
  Transmission Date: 20230417
  Serious: Yes (Hospitalization)
  Sender: FDA-Public Use
  Company Number: DE-JNJFOC-20210823558

PATIENT
  Age: 51 Year
  Sex: Male

DRUGS (20)
  1. STELARA [Suspect]
     Active Substance: USTEKINUMAB
     Indication: Psoriasis
     Route: 058
     Dates: start: 20160707
  2. GINKGO [Concomitant]
     Active Substance: GINKGO
     Indication: Dizziness
     Dosage: 0-0-1
     Dates: start: 20170613
  3. PANTOZOL [Concomitant]
     Active Substance: PANTOPRAZOLE SODIUM
     Indication: Gastritis
     Dosage: 1-0-1
     Dates: start: 20170627
  4. PANTOZOL [Concomitant]
     Active Substance: PANTOPRAZOLE SODIUM
     Indication: Gastrooesophageal reflux disease
  5. FLUCONAZOLE [Concomitant]
     Active Substance: FLUCONAZOLE
     Indication: Oral candidiasis
  6. LORAZEPAM [Concomitant]
     Active Substance: LORAZEPAM
  7. LORATADINE [Concomitant]
     Active Substance: LORATADINE
     Dosage: 0-0-1
     Dates: start: 20170703
  8. CALCIUM MONOETHYLFUMARATE\DIMETHYL FUMARATE\MAGNESIUM MONOETHYLFUMARAT [Concomitant]
     Active Substance: CALCIUM MONOETHYLFUMARATE\DIMETHYL FUMARATE\MAGNESIUM MONOETHYLFUMARATE\ZINC MONOETHYLFUMARATE
     Route: 065
     Dates: start: 201004, end: 201005
  9. ACITRETIN [Concomitant]
     Active Substance: ACITRETIN
     Route: 065
     Dates: start: 201210, end: 201211
  10. RAMIPRIL [Concomitant]
     Active Substance: RAMIPRIL
     Dosage: 1-0-0
  11. ASPIRIN [Concomitant]
     Active Substance: ASPIRIN
     Dosage: 0-1-0
  12. PERAZINE [Concomitant]
     Active Substance: PERAZINE
     Dosage: (1/2-1/2-1 1/2)
  13. BISOPROLOL [Concomitant]
     Active Substance: BISOPROLOL
     Dosage: 1-0-0
  14. FLUVOXAMINE [Concomitant]
     Active Substance: FLUVOXAMINE
     Dosage: 2-1-0
  15. MIRTAZAPINE [Concomitant]
     Active Substance: MIRTAZAPINE
     Dosage: (0-0-1)
  16. NOVALGIN (METAMIZOLE SODIUM) [Concomitant]
     Active Substance: METAMIZOLE SODIUM
     Dosage: 30 DROPS IF NEEDED (MAX. 4X DAILY)
  17. ALBUTEROL [Concomitant]
     Active Substance: ALBUTEROL
  18. SYMBICORT [Concomitant]
     Active Substance: BUDESONIDE\FORMOTEROL FUMARATE DIHYDRATE
     Dosage: (2-0-2)
  19. GLYCOPYRROLATE [Concomitant]
     Active Substance: GLYCOPYRROLATE
  20. BECLOMETHASONE DIPROPIONATE [Concomitant]
     Active Substance: BECLOMETHASONE DIPROPIONATE

REACTIONS (1)
  - Pneumonitis [Recovered/Resolved]

NARRATIVE: CASE EVENT DATE: 20170609
